FAERS Safety Report 7703549-9 (Version None)
Quarter: 2011Q3

REPORT INFORMATION
  Report Type: 
  Country: None (occurrence: None)
  Receive Date: 20110823
  Receipt Date: 20110809
  Transmission Date: 20111222
  Serious: Yes (Other)
  Sender: FDA-Public Use
  Company Number: PHHY2011BR71958

PATIENT
  Age: 63 Year
  Sex: Female

DRUGS (1)
  1. FORMOTEROL FUMARATE [Suspect]
     Indication: ASTHMA
     Dosage: 2 INHALATIONS A DAY (IN THE MORNING AND IN THE AFTERNOON

REACTIONS (2)
  - FATIGUE [None]
  - DIABETES MELLITUS [None]
